FAERS Safety Report 25752328 (Version 1)
Quarter: 2025Q3

REPORT INFORMATION
  Report Type: Report from Study
  Country: EU (occurrence: EU)
  Receive Date: 20250902
  Receipt Date: 20250902
  Transmission Date: 20251020
  Serious: Yes (Other)
  Sender: ALEXION PHARMACEUTICALS
  Company Number: EU-ASTRAZENECA-202508EEA023894IE

PATIENT
  Age: 40 Year
  Sex: Female

DRUGS (15)
  1. BENRALIZUMAB [Suspect]
     Active Substance: BENRALIZUMAB
     Indication: Asthma
  2. BENRALIZUMAB [Suspect]
     Active Substance: BENRALIZUMAB
  3. BENRALIZUMAB [Suspect]
     Active Substance: BENRALIZUMAB
  4. FASENRA [Concomitant]
     Active Substance: BENRALIZUMAB
     Route: 065
  5. MOTILIUM [Concomitant]
     Active Substance: DOMPERIDONE
     Route: 065
  6. VENTOLIN [Concomitant]
     Active Substance: ALBUTEROL SULFATE
     Route: 065
  7. SERETIDE [Concomitant]
     Active Substance: FLUTICASONE PROPIONATE\SALMETEROL XINAFOATE
     Route: 065
  8. SPIRIVA [Concomitant]
     Active Substance: TIOTROPIUM BROMIDE MONOHYDRATE
     Route: 065
  9. XANAX [Concomitant]
     Active Substance: ALPRAZOLAM
     Route: 065
  10. VIMOVO [Concomitant]
     Active Substance: ESOMEPRAZOLE MAGNESIUM\NAPROXEN
     Route: 065
  11. Nexazole [Concomitant]
     Route: 065
  12. Rinozal [Concomitant]
     Route: 065
  13. MONTELUKAST [Concomitant]
     Active Substance: MONTELUKAST
     Route: 065
  14. SALINE [Concomitant]
     Active Substance: SODIUM CHLORIDE
     Route: 065
  15. Mirap [Concomitant]
     Route: 065

REACTIONS (1)
  - Lower respiratory tract infection [Recovered/Resolved]

NARRATIVE: CASE EVENT DATE: 20250814
